FAERS Safety Report 20303827 (Version 5)
Quarter: 2022Q1

REPORT INFORMATION
  Report Type: Report from Study
  Country: US (occurrence: US)
  Receive Date: 20220106
  Receipt Date: 20220307
  Transmission Date: 20220423
  Serious: Yes (Other)
  Sender: FDA-Public Use
  Company Number: US-JAZZ-2021-US-023734

PATIENT
  Age: 44 Year
  Sex: Female

DRUGS (5)
  1. XYWAV [Suspect]
     Active Substance: CALCIUM OXYBATE\MAGNESIUM OXYBATE\POTASSIUM OXYBATE\SODIUM OXYBATE
     Indication: Narcolepsy
     Dosage: 2.5 GRAM, BID
     Route: 048
     Dates: start: 20211228
  2. XYWAV [Suspect]
     Active Substance: CALCIUM OXYBATE\MAGNESIUM OXYBATE\POTASSIUM OXYBATE\SODIUM OXYBATE
     Indication: Cataplexy
     Dosage: 3 GRAM, BID
     Route: 048
  3. XYWAV [Suspect]
     Active Substance: CALCIUM OXYBATE\MAGNESIUM OXYBATE\POTASSIUM OXYBATE\SODIUM OXYBATE
     Indication: Somnolence
  4. WAKIX [Suspect]
     Active Substance: PITOLISANT HYDROCHLORIDE
     Indication: Product used for unknown indication
     Dosage: UNK
     Dates: start: 202109, end: 202112
  5. AMOXICILLIN [Concomitant]
     Active Substance: AMOXICILLIN
     Dosage: 0000
     Dates: start: 20211215, end: 20211230

REACTIONS (14)
  - Atrial fibrillation [Not Recovered/Not Resolved]
  - Renal pain [Unknown]
  - Hypoaesthesia [Unknown]
  - Abnormal sleep-related event [Unknown]
  - Muscle spasms [Unknown]
  - Paraesthesia [Unknown]
  - Confusional state [Not Recovered/Not Resolved]
  - Dizziness [Unknown]
  - Memory impairment [Unknown]
  - COVID-19 [Unknown]
  - Myalgia [Not Recovered/Not Resolved]
  - Facial pain [Not Recovered/Not Resolved]
  - Iron deficiency [Unknown]
  - Amnesia [Unknown]

NARRATIVE: CASE EVENT DATE: 20211201
